FAERS Safety Report 8047516-7 (Version None)
Quarter: 2012Q1

REPORT INFORMATION
  Report Type: 
  Country: None (occurrence: None)
  Receive Date: 20120116
  Receipt Date: 20120112
  Transmission Date: 20120608
  Serious: No
  Sender: FDA-Public Use
  Company Number: US-BAYER-2012-004206

PATIENT
  Age: 64 Year
  Sex: Male

DRUGS (6)
  1. LEVITRA [Suspect]
     Indication: ERECTILE DYSFUNCTION
     Dosage: 20 MG, UNK
     Route: 048
     Dates: start: 20080101
  2. FORADIL [Concomitant]
  3. ASPIRIN [Concomitant]
     Dosage: 81 MG, UNK
  4. PROVENTIL [Concomitant]
  5. LISINOPRIL [Concomitant]
  6. ASMANEX TWISTHALER [Concomitant]

REACTIONS (1)
  - ERECTILE DYSFUNCTION [None]
